FAERS Safety Report 10216560 (Version 1)
Quarter: 2014Q2

REPORT INFORMATION
  Report Type: Spontaneous
  Country: US (occurrence: US)
  Receive Date: 20140604
  Receipt Date: 20140604
  Transmission Date: 20141212
  Serious: Yes (Other)
  Sender: FDA-Public Use
  Company Number: US-BAYER-2014-081388

PATIENT
  Age: 29 Year
  Sex: Female
  Weight: 75.28 kg

DRUGS (13)
  1. MIRENA [Suspect]
     Dosage: UNK
     Route: 015
     Dates: start: 20080502, end: 201205
  2. VITAMIN D3 [Concomitant]
     Route: 048
  3. B12 [Concomitant]
     Route: 048
  4. CHITOSAN [CHITOSAN] [Concomitant]
     Route: 048
  5. BIOTIN [Concomitant]
     Dosage: 1000 ?G, UNK
     Route: 048
  6. TUMERIC [Concomitant]
     Route: 048
  7. CLA [Concomitant]
     Dosage: DAILY DOSE 1.56 MG
     Route: 048
  8. ACETYLCARNITINE HYDROCHLORIDE [Concomitant]
     Dosage: DAILY DOSE 400 MG
  9. ALPHA LIPOIC ACID [Concomitant]
     Route: 048
  10. PROBIOTICS [Concomitant]
     Route: 048
  11. CINNAMON [Concomitant]
     Dosage: DAILY DOSE 1000 MG
     Route: 048
  12. MALIC ACID [Concomitant]
     Dosage: DAILY DOSE 1500 MG
  13. BETAINE HYDROCHLORIDE [Concomitant]
     Dosage: DAILY DOSE 645 MG

REACTIONS (14)
  - Chemical poisoning [Not Recovered/Not Resolved]
  - Antinuclear antibody positive [None]
  - Thyroid neoplasm [Recovering/Resolving]
  - Weight increased [None]
  - Fatigue [None]
  - Myalgia [None]
  - Feeling cold [None]
  - Palpitations [None]
  - Nausea [None]
  - Alopecia [None]
  - Acne [None]
  - Constipation [None]
  - Adrenal disorder [Not Recovered/Not Resolved]
  - Hypothalamic pituitary adrenal axis suppression [None]
